FAERS Safety Report 13687884 (Version 3)
Quarter: 2017Q3

REPORT INFORMATION
  Report Type: Report from Study
  Country: None (occurrence: DE)
  Receive Date: 20170626
  Receipt Date: 20170803
  Transmission Date: 20171127
  Serious: Yes (Hospitalization)
  Sender: FDA-Public Use
  Company Number: DE-ABBVIE-17K-062-2014513-00

PATIENT
  Age: 61 Year
  Sex: Male

DRUGS (9)
  1. PANTOZOL (ERYTHROMYCIN\SULFISOXAZOLE) [Concomitant]
     Active Substance: ERYTHROMYCIN\SULFISOXAZOLE
     Indication: PRODUCT USED FOR UNKNOWN INDICATION
  2. NACOM [Concomitant]
     Active Substance: CARBIDOPA\LEVODOPA
     Indication: PRODUCT USED FOR UNKNOWN INDICATION
     Dosage: 200/ 50MG: 7:00 A.M. UNTIL 10:00 A.M. AND 1:00 P.M. UNTIL 7:00 P.M.
  3. LEVOCOMP [Concomitant]
     Active Substance: CARBIDOPA\LEVODOPA
     Indication: PRODUCT USED FOR UNKNOWN INDICATION
  4. LEVOCOMP [Concomitant]
     Active Substance: CARBIDOPA\LEVODOPA
  5. MIRTAZAPIN [Concomitant]
     Active Substance: MIRTAZAPINE
     Indication: PRODUCT USED FOR UNKNOWN INDICATION
  6. L-DOPA/CARBIDOPA RET. [Concomitant]
     Indication: PRODUCT USED FOR UNKNOWN INDICATION
     Dosage: 200/ 50 MG AT 10:00 P.M.
  7. MADOPAR LT [Concomitant]
     Active Substance: BENSERAZIDE HYDROCHLORIDE\LEVODOPA
     Indication: PRODUCT USED FOR UNKNOWN INDICATION
     Dosage: 100/ 25 MG AT 6:00 AM . UNTIL 4 TIMES A DAY, AT NIGHT
  8. DUODOPA [Suspect]
     Active Substance: CARBIDOPA\LEVODOPA
     Indication: PARKINSON^S DISEASE
     Dosage: MD 7 ML; CRD 4.6 ML /H, ED 2 ML
     Route: 050
     Dates: start: 20091121, end: 201704
  9. DUODOPA [Suspect]
     Active Substance: CARBIDOPA\LEVODOPA
     Dosage: MD 7.0 ML; CRD 4.6 ML/H; ED 2.0 ML
     Route: 050
     Dates: start: 2017

REACTIONS (9)
  - On and off phenomenon [Not Recovered/Not Resolved]
  - Stoma site discharge [Unknown]
  - Impaired healing [Unknown]
  - Persistent depressive disorder [Unknown]
  - Stoma site discharge [Unknown]
  - Stoma site inflammation [Unknown]
  - Depression [Unknown]
  - Stoma site infection [Unknown]
  - Dysarthria [Unknown]

NARRATIVE: CASE EVENT DATE: 2017
